FAERS Safety Report 11776207 (Version 1)
Quarter: 2015Q4

REPORT INFORMATION
  Report Type: Report from Study
  Country: US (occurrence: US)
  Receive Date: 20151125
  Receipt Date: 20151125
  Transmission Date: 20160304
  Serious: Yes (Life-Threatening, Hospitalization, Other)
  Sender: FDA-Public Use
  Company Number: US-ROCHE-782890

PATIENT
  Age: 64 Year
  Sex: Female

DRUGS (3)
  1. BEVACIZUMAB [Suspect]
     Active Substance: BEVACIZUMAB
     Indication: OVARIAN EPITHELIAL CANCER
     Dosage: CYCLES =3,OVER 30-90 MINS ON DAY 1, BEGINING WITH CYCLE 2, LAST DATE PRIOR TO SAE: 08 DECEMBER 2010
     Route: 042
  2. CARBOPLATIN. [Suspect]
     Active Substance: CARBOPLATIN
     Indication: OVARIAN EPITHELIAL CANCER
     Dosage: AUC 6 IP ON DAY 1
     Route: 042
  3. PACLITAXEL. [Suspect]
     Active Substance: PACLITAXEL
     Indication: OVARIAN EPITHELIAL CANCER
     Dosage: OVER 1 HR ON DAYS 1,8 AND 15
     Route: 042

REACTIONS (10)
  - Haemoglobin decreased [Recovered/Resolved]
  - Pyrexia [Unknown]
  - Hypokalaemia [Unknown]
  - Anaemia [Recovered/Resolved]
  - Neutrophil count decreased [Unknown]
  - Febrile neutropenia [Unknown]
  - Hypoalbuminaemia [Unknown]
  - Hypocalcaemia [Unknown]
  - Colonic fistula [Unknown]
  - Hyponatraemia [Unknown]

NARRATIVE: CASE EVENT DATE: 20101121
